FAERS Safety Report 24533078 (Version 2)
Quarter: 2024Q4

REPORT INFORMATION
  Report Type: Spontaneous
  Country: IT (occurrence: IT)
  Receive Date: 20241022
  Receipt Date: 20241108
  Transmission Date: 20250115
  Serious: Yes (Hospitalization)
  Sender: NOVARTIS
  Company Number: None

PATIENT
  Age: 55 Year
  Sex: Female
  Weight: 78 kg

DRUGS (7)
  1. CYCLOSPORINE [Suspect]
     Active Substance: CYCLOSPORINE
     Indication: Allogenic stem cell transplantation
     Dosage: UNK, (150 MG/DIE), (NON DISPONIBILE)
     Route: 042
     Dates: start: 20240922, end: 20241001
  2. METHOTREXATE SODIUM [Suspect]
     Active Substance: METHOTREXATE SODIUM
     Indication: Allogenic stem cell transplantation
     Dosage: 15 MG/MQ (29 MG/DIE) I GIORNI 28/09, 01/10
     Route: 042
     Dates: start: 20240928, end: 20241001
  3. FLUDARABINE PHOSPHATE [Concomitant]
     Active Substance: FLUDARABINE PHOSPHATE
     Indication: Allogenic stem cell transplantation
     Dosage: 60 MG/DIE (NON DISPONIBILE)
     Route: 042
     Dates: start: 20240920, end: 20240921
  4. RITUXIMAB [Concomitant]
     Active Substance: RITUXIMAB
     Indication: Allogenic stem cell transplantation
     Dosage: 728 MG/DIE (NON DISPONIBILE)
     Route: 042
     Dates: start: 20240923, end: 20240923
  5. THYMOGLOBULINE [Concomitant]
     Active Substance: LAPINE T-LYMPHOCYTE IMMUNE GLOBULIN
     Indication: Allogenic stem cell transplantation
     Dosage: 2 MG/KG (NON NOTO)
     Route: 042
     Dates: start: 20240920, end: 20240922
  6. ACYCLOVIR [Concomitant]
     Active Substance: ACYCLOVIR
     Indication: Allogenic stem cell transplantation
     Dosage: 400 MG X 2/DIE (NON DISPONIBILE)
     Route: 048
     Dates: start: 20240926
  7. LETERMOVIR [Concomitant]
     Active Substance: LETERMOVIR
     Indication: Allogenic stem cell transplantation
     Dosage: 240 MG/DIE (NON DISPONIBILE)
     Route: 042
     Dates: start: 20240926

REACTIONS (1)
  - Toxic encephalopathy [Recovering/Resolving]

NARRATIVE: CASE EVENT DATE: 20241001
